FAERS Safety Report 17270009 (Version 2)
Quarter: 2020Q1

REPORT INFORMATION
  Report Type: Spontaneous
  Country: JP (occurrence: JP)
  Receive Date: 20200114
  Receipt Date: 20200123
  Transmission Date: 20200409
  Serious: Yes (Hospitalization)
  Sender: FDA-Public Use
  Company Number: JP-BAYER-2020-004286

PATIENT
  Age: 26 Year
  Sex: Female

DRUGS (1)
  1. YAZ [Suspect]
     Active Substance: DROSPIRENONE\ETHINYL ESTRADIOL
     Indication: DYSMENORRHOEA
     Dosage: UNK
     Route: 048

REACTIONS (1)
  - Stress [Recovered/Resolved]
